FAERS Safety Report 8036561-3 (Version None)
Quarter: 2012Q1

REPORT INFORMATION
  Report Type: 
  Country: None (occurrence: None)
  Receive Date: 20120111
  Receipt Date: 20111229
  Transmission Date: 20120608
  Serious: Yes (Hospitalization)
  Sender: FDA-Public Use
  Company Number: NL-MEDIMMUNE-MEDI-0014376

PATIENT
  Sex: Male
  Weight: 4.6 kg

DRUGS (4)
  1. SYNAGIS [Suspect]
     Indication: PREMATURE BABY
     Route: 030
     Dates: start: 20111201, end: 20111201
  2. FERRO [Concomitant]
  3. LACTULOSE [Concomitant]
  4. SYNAGIS [Suspect]
     Route: 030
     Dates: start: 20111229, end: 20111229

REACTIONS (4)
  - FATIGUE [None]
  - HYPOPHAGIA [None]
  - VARICELLA [None]
  - COUGH [None]
